FAERS Safety Report 9868477 (Version 1)
Quarter: 2014Q1

REPORT INFORMATION
  Report Type: Spontaneous
  Country: JP (occurrence: JP)
  Receive Date: 20140204
  Receipt Date: 20140204
  Transmission Date: 20141002
  Serious: Yes (Other)
  Sender: FDA-Public Use
  Company Number: JP-PFIZER INC-2014031209

PATIENT
  Sex: Female

DRUGS (4)
  1. LYRICA [Suspect]
     Indication: PAIN
     Route: 048
  2. LYRICA [Suspect]
     Indication: FIBROMYALGIA
  3. TRAMAL [Suspect]
     Indication: PAIN
     Dosage: UNK
     Dates: start: 2013
  4. TRAMAL [Suspect]
     Indication: FIBROMYALGIA

REACTIONS (4)
  - Respiratory depression [Unknown]
  - Nausea [Unknown]
  - Rash [Unknown]
  - Drug ineffective [Unknown]
